FAERS Safety Report 10102135 (Version 1)
Quarter: 2014Q2

REPORT INFORMATION
  Report Type: Spontaneous
  Country: GB (occurrence: None)
  Receive Date: 20140422
  Receipt Date: 20140422
  Transmission Date: 20141212
  Serious: Yes (Other)
  Sender: FDA-Public Use
  Company Number: AUR-APL-2014-04521

PATIENT
  Age: 87 Year
  Sex: Male

DRUGS (1)
  1. AMOXICILLIN  (AMOXICILLIN) [Suspect]
     Indication: PRODUCT USED FOR UNKNOWN INDICATION

REACTIONS (3)
  - Aspiration [None]
  - Accidental exposure to product [None]
  - Wrong technique in drug usage process [None]
